FAERS Safety Report 6528761-6 (Version None)
Quarter: 2009Q4

REPORT INFORMATION
  Report Type: 
  Country: None (occurrence: None)
  Receive Date: 20091222
  Receipt Date: 20091203
  Transmission Date: 20100525
  Serious: Yes (Hospitalization, Disabling, Other)
  Sender: FDA-Public Use
  Company Number: WAES 0810CHN00010

PATIENT
  Age: 61 Year
  Sex: Male

DRUGS (6)
  1. COZAAR [Suspect]
     Indication: CARDIAC FAILURE CONGESTIVE
     Dosage: 50 MG/DAILY PO
     Route: 048
     Dates: start: 20040302
  2. AMBROXOL HCL [Concomitant]
  3. CEFUROXIME SODIUM [Concomitant]
  4. CHYMOTRYPSIN [Concomitant]
  5. ISOSORBIDE DINITRATE [Concomitant]
  6. MOXIFLOXACINN HYDDROCHLORIDE [Concomitant]

REACTIONS (16)
  - AORTIC THROMBOSIS [None]
  - ARTERIAL THROMBOSIS [None]
  - BLOOD PRESSURE INCREASED [None]
  - CHEST PAIN [None]
  - COMMUNICATION DISORDER [None]
  - COUGH [None]
  - DYSPNOEA [None]
  - HYPERHIDROSIS [None]
  - LEG AMPUTATION [None]
  - MUSCULAR WEAKNESS [None]
  - PALLOR [None]
  - PERIPHERAL COLDNESS [None]
  - RALES [None]
  - RENAL ARTERY THROMBOSIS [None]
  - SPLEEN DISORDER [None]
  - STRIDOR [None]
